FAERS Safety Report 18930560 (Version 3)
Quarter: 2021Q4

REPORT INFORMATION
  Report Type: Spontaneous
  Country: US (occurrence: US)
  Receive Date: 20210224
  Receipt Date: 20211006
  Transmission Date: 20220303
  Serious: Yes (Other)
  Sender: FDA-Public Use
  Company Number: US-JNJFOC-20210233025

PATIENT
  Age: 34 Year
  Sex: Male

DRUGS (16)
  1. ELMIRON [Suspect]
     Active Substance: PENTOSAN POLYSULFATE SODIUM
     Indication: Cystitis interstitial
     Route: 048
     Dates: start: 20001029, end: 201712
  2. ELMIRON [Suspect]
     Active Substance: PENTOSAN POLYSULFATE SODIUM
     Route: 048
     Dates: start: 20180307, end: 202009
  3. PREVACID [Concomitant]
     Active Substance: LANSOPRAZOLE
     Indication: Gastrooesophageal reflux disease
     Dates: start: 1996, end: 2001
  4. CIPRO [Concomitant]
     Active Substance: CIPROFLOXACIN HYDROCHLORIDE
     Indication: Prostatitis
     Dates: start: 200003, end: 200012
  5. BACLOFEN [Concomitant]
     Active Substance: BACLOFEN
     Indication: Prostatitis
     Dates: start: 2001
  6. BACLOFEN [Concomitant]
     Active Substance: BACLOFEN
     Indication: Cystitis interstitial
  7. NEURONTIN [Concomitant]
     Active Substance: GABAPENTIN
     Indication: Prostatitis
     Dates: start: 2002, end: 2004
  8. NEURONTIN [Concomitant]
     Active Substance: GABAPENTIN
     Indication: Cystitis interstitial
  9. LYRICA [Concomitant]
     Active Substance: PREGABALIN
     Indication: Prostatitis
     Dates: start: 2004
  10. LYRICA [Concomitant]
     Active Substance: PREGABALIN
     Indication: Cystitis interstitial
  11. DOXAZOSIN [Concomitant]
     Active Substance: DOXAZOSIN MESYLATE
     Indication: Prostatitis
     Dates: start: 2010
  12. OXYCODONE [Concomitant]
     Active Substance: OXYCODONE
     Indication: Prostatitis
     Dates: start: 2003
  13. OXYCODONE [Concomitant]
     Active Substance: OXYCODONE
     Indication: Cystitis interstitial
  14. DEXILANT [Concomitant]
     Active Substance: DEXLANSOPRAZOLE
     Indication: Gastrooesophageal reflux disease
     Dates: start: 2001
  15. MESALAMINE [Concomitant]
     Active Substance: MESALAMINE
     Indication: Inflammatory bowel disease
     Dates: start: 2014
  16. TESTOSTERONE [Concomitant]
     Active Substance: TESTOSTERONE
     Indication: Blood testosterone decreased
     Dates: start: 2019

REACTIONS (3)
  - Retinal dystrophy [Not Recovered/Not Resolved]
  - Depression [Not Recovered/Not Resolved]
  - Cystitis interstitial [Recovering/Resolving]

NARRATIVE: CASE EVENT DATE: 20001101
